FAERS Safety Report 9834536 (Version 2)
Quarter: 2014Q1

REPORT INFORMATION
  Report Type: Report from Study
  Country: CA (occurrence: CA)
  Receive Date: 20140122
  Receipt Date: 20140122
  Transmission Date: 20141002
  Serious: Yes (Other)
  Sender: FDA-Public Use
  Company Number: CA-ROCHE-1290021

PATIENT
  Age: 62 Year
  Sex: Female

DRUGS (10)
  1. PEGASYS [Suspect]
     Indication: CHRONIC HEPATITIS C
     Route: 058
     Dates: start: 20130911
  2. COPEGUS [Suspect]
     Indication: CHRONIC HEPATITIS C
     Route: 048
     Dates: start: 20130911
  3. VICTRELIS [Suspect]
     Indication: CHRONIC HEPATITIS C
     Route: 048
     Dates: start: 20131009
  4. TRAZODONE [Concomitant]
  5. AMLODIPINE [Concomitant]
     Route: 065
  6. VALSARTAN HCT [Concomitant]
  7. PARIET [Concomitant]
  8. INSULIN [Concomitant]
     Indication: DIABETES MELLITUS
  9. PROZAC [Concomitant]
     Indication: DEPRESSION
     Route: 065
  10. APO-K [Concomitant]
     Route: 048

REACTIONS (7)
  - Transfusion [Unknown]
  - Cough [Not Recovered/Not Resolved]
  - Laryngitis [Not Recovered/Not Resolved]
  - Vomiting [Recovered/Resolved]
  - Pruritus [Unknown]
  - Parosmia [Unknown]
  - Dysgeusia [Unknown]
